FAERS Safety Report 4302140-4 (Version None)
Quarter: 2004Q1

REPORT INFORMATION
  Report Type: 
  Country: None (occurrence: None)
  Receive Date: 20040220
  Receipt Date: 20040205
  Transmission Date: 20041129
  Serious: Yes (Death)
  Sender: FDA-Public Use
  Company Number: 204755

PATIENT
  Age: 58 Year
  Sex: Female
  Weight: 50 kg

DRUGS (7)
  1. HERCEPTIN [Suspect]
     Indication: BREAST CANCER METASTATIC
     Dosage: SEE IMAGE
     Route: 042
     Dates: start: 20010808, end: 20010808
  2. HERCEPTIN [Suspect]
     Indication: BREAST CANCER METASTATIC
     Dosage: SEE IMAGE
     Route: 042
     Dates: start: 20010815, end: 20020529
  3. TAXOTERE [Concomitant]
  4. TAXOL [Concomitant]
  5. DIPHENHYDRAMINE HCL [Concomitant]
  6. DECADRON [Concomitant]
  7. ZANTAC [Concomitant]

REACTIONS (2)
  - EJECTION FRACTION DECREASED [None]
  - GASTRIC ULCER HAEMORRHAGE [None]
